FAERS Safety Report 8447933-7 (Version None)
Quarter: 2012Q2

REPORT INFORMATION
  Report Type: 
  Country: None (occurrence: None)
  Receive Date: 20120619
  Receipt Date: 20120613
  Transmission Date: 20120825
  Serious: Yes (Other)
  Sender: FDA-Public Use
  Company Number: PHHY2012FR051743

PATIENT
  Age: 71 Year
  Sex: Female
  Weight: 77 kg

DRUGS (1)
  1. ZOLEDRONOC ACID [Suspect]
     Indication: OSTEOPOROSIS
     Route: 042
     Dates: start: 20110901

REACTIONS (5)
  - SPEECH DISORDER [None]
  - PAIN [None]
  - FEELING ABNORMAL [None]
  - TREMOR [None]
  - MEMORY IMPAIRMENT [None]
